FAERS Safety Report 4297252-8 (Version None)
Quarter: 2004Q1

REPORT INFORMATION
  Report Type: 
  Country: None (occurrence: None)
  Receive Date: 20040213
  Receipt Date: 20040203
  Transmission Date: 20041129
  Serious: Yes (Hospitalization)
  Sender: FDA-Public Use
  Company Number: US-SHR-04-020708

PATIENT
  Age: 36 Year
  Sex: Male
  Weight: 107 kg

DRUGS (7)
  1. BETASERON [Suspect]
     Indication: MULTIPLE SCLEROSIS RELAPSE
     Dosage: 8MIU, EVERY 2D, PM, SUBCUTANEOUS
     Route: 058
     Dates: start: 19971101
  2. BACLOFEN [Concomitant]
  3. XANAX /USA/ (ALPRAZOLAM) [Concomitant]
  4. CELEBREX [Concomitant]
  5. RANITIDINE [Concomitant]
  6. NEURONTIN [Concomitant]
  7. LISINOPRIL W/HYDROCHLOROTHIAZIDE (LISINOPRIL) [Concomitant]

REACTIONS (3)
  - CHILLS [None]
  - DYSKINESIA [None]
  - PYREXIA [None]
